FAERS Safety Report 10267926 (Version 1)
Quarter: 2014Q2

REPORT INFORMATION
  Report Type: Spontaneous
  Country: CN (occurrence: CN)
  Receive Date: 20140630
  Receipt Date: 20140630
  Transmission Date: 20141212
  Serious: Yes (Life-Threatening)
  Sender: FDA-Public Use
  Company Number: CN-BEH-2014043641

PATIENT
  Age: 58 Year
  Sex: Male

DRUGS (2)
  1. HUMAN SERUM ALBUMIN 20%/50ML (10G) [Suspect]
     Dosage: DOSE: 1 UNIT (50 ML (10 G)) AT 1.5 ML/MIN, FREQUENCY: QD, DISCONTINUED AFTER 30 ML
     Route: 041
     Dates: start: 20001013, end: 20001013
  2. HUMAN SERUM ALBUMIN 20%/50ML (10G) [Suspect]
     Dosage: DOSE: IMMEDIATELY DISCONTINUED AFTER 10 ML
     Route: 041
     Dates: start: 20001014, end: 20001014

REACTIONS (15)
  - Altered state of consciousness [Recovered/Resolved]
  - Pulse absent [Recovered/Resolved]
  - Heart rate irregular [Recovered/Resolved]
  - Respiration abnormal [Recovered/Resolved]
  - Hypotension [Recovered/Resolved]
  - Cyanosis [Recovered/Resolved]
  - Sputum abnormal [Recovered/Resolved]
  - Foaming at mouth [Recovered/Resolved]
  - Lung disorder [Recovered/Resolved]
  - Atrial fibrillation [Unknown]
  - Anaphylactic shock [Recovered/Resolved]
  - Hypersensitivity [Recovered/Resolved]
  - Rash [Recovered/Resolved]
  - Pruritus [Recovered/Resolved]
  - Anaphylactic shock [None]
